FAERS Safety Report 5451002-8 (Version None)
Quarter: 2007Q3

REPORT INFORMATION
  Report Type: 
  Country: None (occurrence: None)
  Receive Date: 20070911
  Receipt Date: 20070911
  Transmission Date: 20080115
  Serious: No
  Sender: FDA-Public Use
  Company Number: None

PATIENT
  Sex: Female
  Weight: 92.5338 kg

DRUGS (2)
  1. AMLODIPINE BESYLATE AND BENAZEPRIL HCL [Suspect]
     Indication: HYPERTENSION
     Dosage: 5/20MG 1 DAILY ORAL
     Route: 048
     Dates: start: 20070801
  2. LOTREL [Suspect]

REACTIONS (2)
  - FLATULENCE [None]
  - URINE ODOUR ABNORMAL [None]
